FAERS Safety Report 16859974 (Version 1)
Quarter: 2019Q3

REPORT INFORMATION
  Report Type: Spontaneous
  Country: US (occurrence: US)
  Receive Date: 20190927
  Receipt Date: 20190927
  Transmission Date: 20191005
  Serious: No
  Sender: FDA-Public Use
  Company Number: US-STRIDES ARCOLAB LIMITED-2019SP008300

PATIENT
  Age: 34 Year
  Sex: Female

DRUGS (20)
  1. VANCOMYCIN [Suspect]
     Active Substance: VANCOMYCIN
     Indication: PYREXIA
     Dosage: 1 G, EVERY 12 HRS (RESTARTED)
     Route: 042
  2. AMPICILLIN [Suspect]
     Active Substance: AMPICILLIN
     Indication: EVIDENCE BASED TREATMENT
     Dosage: 2 G, EVERY 4 HRS
     Route: 065
  3. AMPICILLIN [Suspect]
     Active Substance: AMPICILLIN
     Indication: ENCEPHALITIS
  4. OSELTAMIVIR [Suspect]
     Active Substance: OSELTAMIVIR
     Indication: FATIGUE
  5. OSELTAMIVIR [Suspect]
     Active Substance: OSELTAMIVIR
     Indication: CHILLS
  6. OSELTAMIVIR [Suspect]
     Active Substance: OSELTAMIVIR
     Indication: EVIDENCE BASED TREATMENT
  7. VANCOMYCIN [Suspect]
     Active Substance: VANCOMYCIN
     Indication: ENCEPHALITIS
  8. OSELTAMIVIR [Suspect]
     Active Substance: OSELTAMIVIR
     Indication: MYALGIA
  9. VANCOMYCIN [Suspect]
     Active Substance: VANCOMYCIN
     Indication: EVIDENCE BASED TREATMENT
     Dosage: 1 G, EVERY 12 HRS
     Route: 042
  10. ACICLOVIR [Suspect]
     Active Substance: ACYCLOVIR
     Indication: EVIDENCE BASED TREATMENT
     Dosage: 700 MG, EVERY 8 HOURS
     Route: 065
  11. CEFTRIAXONE. [Suspect]
     Active Substance: CEFTRIAXONE
     Indication: ENCEPHALITIS
     Dosage: 2 G, EVERY 24 HOURS
  12. OSELTAMIVIR [Suspect]
     Active Substance: OSELTAMIVIR
     Indication: PYREXIA
     Dosage: 75 MG, EVERY 12 HRS
     Route: 065
  13. OSELTAMIVIR [Suspect]
     Active Substance: OSELTAMIVIR
     Indication: HEADACHE
  14. CEFTRIAXONE. [Suspect]
     Active Substance: CEFTRIAXONE
     Indication: EVIDENCE BASED TREATMENT
     Dosage: 2 G, EVERY 12 HRS
     Route: 065
  15. CEFTRIAXONE. [Suspect]
     Active Substance: CEFTRIAXONE
     Indication: HAEMOPHILUS INFECTION
  16. CEFTRIAXONE. [Suspect]
     Active Substance: CEFTRIAXONE
     Indication: ENDOCARDITIS
  17. CEFEPIME [Suspect]
     Active Substance: CEFEPIME HYDROCHLORIDE
     Indication: EVIDENCE BASED TREATMENT
     Dosage: 2 G, EVERY 8 HOURS
     Route: 065
  18. CEFEPIME [Suspect]
     Active Substance: CEFEPIME HYDROCHLORIDE
     Indication: PYREXIA
     Dosage: 2 G, EVERY 8 HOURS (RESTARTED)
     Route: 065
  19. OSELTAMIVIR [Suspect]
     Active Substance: OSELTAMIVIR
     Indication: UPPER-AIRWAY COUGH SYNDROME
  20. ACICLOVIR [Suspect]
     Active Substance: ACYCLOVIR
     Indication: ENCEPHALITIS

REACTIONS (1)
  - Exposure during pregnancy [Unknown]
